FAERS Safety Report 6685968-5 (Version None)
Quarter: 2010Q2

REPORT INFORMATION
  Report Type: 
  Country: None (occurrence: None)
  Receive Date: 20100419
  Receipt Date: 20100407
  Transmission Date: 20101027
  Serious: Yes (Hospitalization, Other)
  Sender: FDA-Public Use
  Company Number: PHHY2010KR22975

PATIENT
  Age: 18 Year
  Sex: Male

DRUGS (2)
  1. METHYLPHENIDATE [Suspect]
     Dosage: 10 MG, UNK
  2. PAROXETINE HCL [Interacting]
     Dosage: 20 MG, UNK

REACTIONS (18)
  - AGGRESSION [None]
  - CONFUSIONAL STATE [None]
  - DELUSION OF GRANDEUR [None]
  - ELEVATED MOOD [None]
  - HYPERHIDROSIS [None]
  - HYPERREFLEXIA [None]
  - HYPERTENSION [None]
  - LIBIDO INCREASED [None]
  - MANIA [None]
  - MUSCLE RIGIDITY [None]
  - MYDRIASIS [None]
  - MYOCLONUS [None]
  - NUCHAL RIGIDITY [None]
  - PSYCHOTIC DISORDER [None]
  - SEROTONIN SYNDROME [None]
  - SLEEP DISORDER [None]
  - TACHYCARDIA [None]
  - TREMOR [None]
